FAERS Safety Report 4512421-7 (Version None)
Quarter: 2004Q4

REPORT INFORMATION
  Report Type: 
  Country: None (occurrence: None)
  Receive Date: 20041123
  Receipt Date: 20041104
  Transmission Date: 20050328
  Serious: Yes (Death)
  Sender: FDA-Public Use
  Company Number: B0350479A

PATIENT
  Sex: 0

DRUGS (1)
  1. LANOXIN [Suspect]

REACTIONS (5)
  - ATRIAL FIBRILLATION [None]
  - BRADYARRHYTHMIA [None]
  - TACHYARRHYTHMIA [None]
  - THERAPEUTIC AGENT TOXICITY [None]
  - VENTRICULAR TACHYCARDIA [None]
